FAERS Safety Report 17710246 (Version 1)
Quarter: 2020Q2

REPORT INFORMATION
  Report Type: Spontaneous
  Country: US (occurrence: US)
  Receive Date: 20200427
  Receipt Date: 20200427
  Transmission Date: 20200714
  Serious: No
  Sender: FDA-Public Use
  Company Number: US-SA-2020SA106705

PATIENT
  Age: 32 Year
  Sex: Female

DRUGS (2)
  1. INSULIN LISPRO [Concomitant]
     Active Substance: INSULIN LISPRO
     Dosage: 26 IU
     Route: 065
  2. LANTUS SOLOSTAR [Suspect]
     Active Substance: INSULIN GLARGINE
     Indication: TYPE 2 DIABETES MELLITUS
     Dosage: 6, 8 OR 10 UNITS TIMES A DAY, TID
     Route: 065
     Dates: start: 20200407

REACTIONS (4)
  - Cough [Unknown]
  - Medical device discomfort [Unknown]
  - Inappropriate schedule of product administration [Unknown]
  - Localised infection [Unknown]
